FAERS Safety Report 10264287 (Version 1)
Quarter: 2014Q2

REPORT INFORMATION
  Report Type: Spontaneous
  Country: US (occurrence: US)
  Receive Date: 20140627
  Receipt Date: 20140627
  Transmission Date: 20141212
  Serious: No
  Sender: FDA-Public Use
  Company Number: US-TEVA-429592USA

PATIENT
  Sex: Female

DRUGS (1)
  1. PROPRANOLOL [Suspect]
     Indication: HYPERTENSION

REACTIONS (11)
  - Fluid retention [Unknown]
  - Swelling [Unknown]
  - Feeling jittery [Unknown]
  - Headache [Unknown]
  - Migraine [Unknown]
  - Diplopia [Unknown]
  - Hypertension [Unknown]
  - Visual impairment [Unknown]
  - Nausea [Unknown]
  - Dizziness [Unknown]
  - Disorientation [Unknown]
